FAERS Safety Report 8125510-5 (Version None)
Quarter: 2012Q1

REPORT INFORMATION
  Report Type: 
  Country: None (occurrence: None)
  Receive Date: 20120209
  Receipt Date: 20120207
  Transmission Date: 20120608
  Serious: Yes (Life-Threatening, Hospitalization)
  Sender: FDA-Public Use
  Company Number: GXKR2012DE000774

PATIENT

DRUGS (1)
  1. OXALIPLATIN [Suspect]
     Indication: COLON CANCER METASTATIC
     Dosage: 160 MG, UNK
     Route: 042

REACTIONS (2)
  - CARDIAC ARREST [None]
  - PULSE ABSENT [None]
